FAERS Safety Report 9070288 (Version 1)
Quarter: 2013Q1

REPORT INFORMATION
  Report Type: Report from Study
  Country: US (occurrence: US)
  Receive Date: 20130215
  Receipt Date: 20130215
  Transmission Date: 20140127
  Serious: Yes (Hospitalization, Other)
  Sender: FDA-Public Use
  Company Number: US-ABBOTT-13P-163-1046429-00

PATIENT
  Sex: Female
  Weight: 59.93 kg

DRUGS (7)
  1. HUMIRA [Suspect]
     Indication: RHEUMATOID ARTHRITIS
     Dates: start: 2005
  2. NAPROXEN [Concomitant]
     Indication: RHEUMATOID ARTHRITIS
  3. PREVACID [Concomitant]
     Indication: GASTRIC DISORDER
     Dosage: EVERY MORNING
  4. FOLIC ACID [Concomitant]
     Indication: PRODUCT USED FOR UNKNOWN INDICATION
  5. METHOTREXATE [Concomitant]
     Indication: PRODUCT USED FOR UNKNOWN INDICATION
  6. LISINOPRIL [Concomitant]
     Indication: PRODUCT USED FOR UNKNOWN INDICATION
  7. LANSOPRAZOLE [Concomitant]
     Indication: PRODUCT USED FOR UNKNOWN INDICATION

REACTIONS (5)
  - Lung infection [Recovered/Resolved]
  - Cough [Recovered/Resolved]
  - Infected skin ulcer [Unknown]
  - Impaired healing [Unknown]
  - Skin disorder [Not Recovered/Not Resolved]
